FAERS Safety Report 4526785-1 (Version None)
Quarter: 2004Q4

REPORT INFORMATION
  Report Type: 
  Country: None (occurrence: None)
  Receive Date: 20041213
  Receipt Date: 20041202
  Transmission Date: 20050328
  Serious: Yes (Hospitalization)
  Sender: FDA-Public Use
  Company Number: 2004UW24757

PATIENT
  Age: 84 Year
  Sex: Female

DRUGS (3)
  1. NEXIUM [Suspect]
     Dosage: 40 MG PO
     Route: 048
  2. HYDROCHLOROTHIAZIDE [Concomitant]
  3. CELEBREX [Concomitant]

REACTIONS (1)
  - PNEUMONIA [None]
